FAERS Safety Report 25531515 (Version 1)
Quarter: 2025Q3

REPORT INFORMATION
  Report Type: Report from Study
  Country: US (occurrence: US)
  Receive Date: 20250709
  Receipt Date: 20250709
  Transmission Date: 20251020
  Serious: Yes (Other)
  Sender: ABBVIE
  Company Number: US-ABBVIE-6317846

PATIENT
  Sex: Female

DRUGS (1)
  1. SKYRIZI [Suspect]
     Active Substance: RISANKIZUMAB-RZAA
     Indication: Crohn^s disease
     Route: 058
     Dates: start: 20241220

REACTIONS (5)
  - Umbilical hernia [Unknown]
  - Intra-abdominal fluid collection [Unknown]
  - Gait inability [Unknown]
  - Painful respiration [Unknown]
  - Mucous stools [Unknown]
